FAERS Safety Report 8201534-4 (Version None)
Quarter: 2012Q1

REPORT INFORMATION
  Report Type: 
  Country: None (occurrence: None)
  Receive Date: 20120312
  Receipt Date: 20120217
  Transmission Date: 20120608
  Serious: Yes (Hospitalization)
  Sender: FDA-Public Use
  Company Number: JP-GLAXOSMITHKLINE-B0782989A

PATIENT
  Age: 39 Year
  Sex: Female

DRUGS (6)
  1. HYCAMTIN [Suspect]
     Indication: OVARIAN CANCER RECURRENT
     Dosage: 1.25MGM2 PER DAY
     Route: 042
     Dates: start: 20120206, end: 20120210
  2. EMEND [Concomitant]
     Dosage: 80MG PER DAY
     Route: 048
     Dates: start: 20120207, end: 20120208
  3. EMEND [Concomitant]
     Indication: PROPHYLAXIS OF NAUSEA AND VOMITING
     Dosage: 125MG PER DAY
     Route: 048
     Dates: start: 20120206, end: 20120206
  4. ZOMETA [Suspect]
     Indication: PRODUCT USED FOR UNKNOWN INDICATION
     Route: 065
  5. GRANISETRON [Concomitant]
     Indication: PROPHYLAXIS OF NAUSEA AND VOMITING
     Dosage: 3MG PER DAY
     Route: 042
     Dates: start: 20120206, end: 20120210
  6. TOMIRON [Concomitant]
     Dosage: 300MG PER DAY
     Route: 048
     Dates: start: 20120213, end: 20120221

REACTIONS (8)
  - PLATELET COUNT DECREASED [None]
  - FATIGUE [None]
  - RED BLOOD CELL COUNT DECREASED [None]
  - ANAEMIA [None]
  - HYPERCALCAEMIA [None]
  - FEBRILE NEUTROPENIA [None]
  - NEUTROPHIL COUNT DECREASED [None]
  - WHITE BLOOD CELL COUNT DECREASED [None]
